FAERS Safety Report 9314726 (Version 1)
Quarter: 2013Q2

REPORT INFORMATION
  Report Type: Report from Study
  Country: AR (occurrence: AR)
  Receive Date: 20130529
  Receipt Date: 20130529
  Transmission Date: 20140414
  Serious: Yes (Other)
  Sender: FDA-Public Use
  Company Number: PHHY2013AR053660

PATIENT
  Sex: Female

DRUGS (2)
  1. TOBI [Suspect]
     Indication: BRONCHIECTASIS
     Dosage: UNK UKN, BID
     Route: 048
     Dates: start: 201210
  2. TOBI [Suspect]
     Indication: BACTERIAL INFECTION

REACTIONS (6)
  - Wound [Recovering/Resolving]
  - Otitis media [Recovering/Resolving]
  - Ear pain [Recovering/Resolving]
  - Otorrhoea [Recovering/Resolving]
  - Balance disorder [Recovered/Resolved]
  - Dysphonia [Recovering/Resolving]
